FAERS Safety Report 4783805-7 (Version None)
Quarter: 2005Q3

REPORT INFORMATION
  Report Type: 
  Country: None (occurrence: None)
  Receive Date: 20050929
  Receipt Date: 20050926
  Transmission Date: 20060218
  Serious: Yes (Life-Threatening, Hospitalization, Disabling)
  Sender: FDA-Public Use
  Company Number: GB-MERCK-0509GBR00174

PATIENT
  Age: 67 Year
  Sex: Male

DRUGS (6)
  1. VIOXX [Suspect]
     Indication: OSTEOARTHRITIS
     Route: 048
     Dates: start: 20040810, end: 20041214
  2. CELECOXIB [Suspect]
     Indication: PAIN IN EXTREMITY
     Route: 048
     Dates: start: 20041214, end: 20050105
  3. ACETAMINOPHEN AND PROPOXYPHENE HYDROCHLORIDE [Concomitant]
     Indication: OSTEOARTHRITIS
     Route: 048
     Dates: start: 20050324, end: 20050501
  4. IBUPROFEN [Concomitant]
     Indication: OSTEOARTHRITIS
     Route: 048
     Dates: start: 20050512
  5. CHONDROITIN [Concomitant]
     Indication: OSTEOARTHRITIS
     Route: 048
     Dates: start: 20050131
  6. GLUCOSAMINE [Concomitant]
     Indication: OSTEOARTHRITIS
     Route: 048
     Dates: start: 20050131

REACTIONS (2)
  - GASTRITIS [None]
  - MYOCARDIAL INFARCTION [None]
